FAERS Safety Report 7249283-3 (Version None)
Quarter: 2011Q1

REPORT INFORMATION
  Report Type: 
  Country: None (occurrence: None)
  Receive Date: 20110128
  Receipt Date: 20101208
  Transmission Date: 20110831
  Serious: Yes (Hospitalization, Other)
  Sender: FDA-Public Use
  Company Number: JP-BAYER-2010-003708

PATIENT
  Sex: Male
  Weight: 60 kg

DRUGS (14)
  1. FOSRENOL [Suspect]
     Indication: HYPERPHOSPHATAEMIA
     Dosage: 750 MG, QD
     Route: 048
     Dates: start: 20100203, end: 20100508
  2. PROTECADIN [Concomitant]
     Dosage: 10 MG, QD
     Route: 048
  3. RENAGEL [Concomitant]
     Indication: HYPERPHOSPHATAEMIA
     Dosage: 2250 MG, QD
     Route: 048
  4. JUVELA N [Concomitant]
     Dosage: 300 MG, QD
     Route: 048
  5. NORVASC [Concomitant]
     Dosage: 5 MG, QD
     Route: 048
  6. ASPIRIN [Suspect]
     Indication: PRODUCT USED FOR UNKNOWN INDICATION
     Dosage: 100 MG, QD
     Route: 048
  7. MEVALOTIN [Concomitant]
     Dosage: 5 MG, QD
     Route: 048
  8. ONEALFA [Concomitant]
     Dosage: 0.5 ?G, QD
     Route: 048
     Dates: start: 20091111
  9. FOLIAMIN [Concomitant]
     Dosage: 10 MG, QD
     Route: 048
  10. FOSRENOL [Suspect]
     Dosage: 750 MG, QD
     Route: 048
     Dates: start: 20100512, end: 20100519
  11. PLAVIX [Suspect]
     Indication: PRODUCT USED FOR UNKNOWN INDICATION
     Dosage: 75 MG, QD
     Route: 048
  12. GOODMIN [Concomitant]
     Indication: INSOMNIA
     Dosage: 0.25 MG, PRN
     Route: 048
  13. LACB-R [Concomitant]
     Dosage: 3 G, QD
     Route: 048
  14. ZADITEN [Concomitant]
     Dosage: 2 MG, QD
     Route: 048

REACTIONS (2)
  - RECTAL ULCER [None]
  - GASTRIC ULCER HAEMORRHAGE [None]
